FAERS Safety Report 7272118-X (Version None)
Quarter: 2011Q1

REPORT INFORMATION
  Report Type: 
  Country: None (occurrence: None)
  Receive Date: 20110203
  Receipt Date: 20110125
  Transmission Date: 20110831
  Serious: Yes (Hospitalization)
  Sender: FDA-Public Use
  Company Number: AT-ASTRAZENECA-2011SE04866

PATIENT
  Age: 50 Year
  Sex: Female

DRUGS (6)
  1. BERODUALIN [Concomitant]
     Route: 065
  2. SEROQUEL [Suspect]
     Route: 048
     Dates: start: 20100327, end: 20100327
  3. LEVOTHYROXINE SODIUM [Concomitant]
     Route: 048
  4. NEUROBION FORTE [Concomitant]
     Route: 048
  5. LOVENOX [Concomitant]
     Route: 058
  6. PANTOLOC [Concomitant]
     Route: 048

REACTIONS (6)
  - INTENTIONAL OVERDOSE [None]
  - AGITATION [None]
  - SINUS TACHYCARDIA [None]
  - COMA [None]
  - COUGH [None]
  - HYPOTENSION [None]
